FAERS Safety Report 17017079 (Version 1)
Quarter: 2019Q4

REPORT INFORMATION
  Report Type: Spontaneous
  Country: US (occurrence: US)
  Receive Date: 20191111
  Receipt Date: 20191111
  Transmission Date: 20200122
  Serious: Yes (Other)
  Sender: FDA-Public Use
  Company Number: US-MYLANLABS-2019M1103643

PATIENT
  Sex: Male

DRUGS (1)
  1. ALPRAZOLAM. [Suspect]
     Active Substance: ALPRAZOLAM
     Indication: SEIZURE
     Dosage: UNK

REACTIONS (5)
  - Malaise [Unknown]
  - Pneumonia [Unknown]
  - Oropharyngeal pain [Unknown]
  - Fatigue [Unknown]
  - Throat tightness [Unknown]
